FAERS Safety Report 9384382 (Version 2)
Quarter: 2013Q3

REPORT INFORMATION
  Report Type: Spontaneous
  Country: US (occurrence: US)
  Receive Date: 20130705
  Receipt Date: 20130911
  Transmission Date: 20140515
  Serious: No
  Sender: FDA-Public Use
  Company Number: PHEH2013US014210

PATIENT
  Sex: Female

DRUGS (5)
  1. DIOVAN [Suspect]
     Dosage: UNK UKN, UNK
     Dates: start: 201009
  2. HYDROCHLOROTHIAZIDE,VALSARTAN [Suspect]
     Dosage: 1 DF, (160 MG VALS/ UNKNOWN HYDRO) QD
  3. GABAPENTIN [Concomitant]
     Dosage: UNK
  4. PRAVASTATIN [Concomitant]
     Dosage: UNK
  5. METFORMIN [Concomitant]
     Dosage: UNK

REACTIONS (2)
  - Eye disorder [Unknown]
  - Diabetes mellitus inadequate control [Unknown]
